APPROVED DRUG PRODUCT: MINOXIDIL (FOR MEN)
Active Ingredient: MINOXIDIL
Strength: 2%
Dosage Form/Route: SOLUTION;TOPICAL
Application: A074643 | Product #001
Applicant: BAUSCH AND LOMB INC
Approved: Apr 9, 1996 | RLD: No | RS: No | Type: DISCN